FAERS Safety Report 11689900 (Version 1)
Quarter: 2015Q4

REPORT INFORMATION
  Report Type: Spontaneous
  Country: GR (occurrence: GR)
  Receive Date: 20151102
  Receipt Date: 20151102
  Transmission Date: 20160304
  Serious: Yes (Other)
  Sender: FDA-Public Use
  Company Number: GR-ELI_LILLY_AND_COMPANY-GR201510007075

PATIENT
  Age: 50 Year
  Sex: Female

DRUGS (6)
  1. DOCETAXEL. [Suspect]
     Active Substance: DOCETAXEL
     Indication: BREAST CANCER METASTATIC
     Dosage: UNK, UNKNOWN
     Route: 065
     Dates: start: 20050405, end: 20050830
  2. AVASTIN [Suspect]
     Active Substance: BEVACIZUMAB
     Indication: BREAST CANCER METASTATIC
     Dosage: UNK, UNKNOWN
     Route: 065
     Dates: start: 20120629, end: 20130107
  3. CAELYX [Concomitant]
     Active Substance: DOXORUBICIN HYDROCHLORIDE
     Indication: BREAST CANCER METASTATIC
     Dosage: UNK, UNKNOWN
     Route: 065
     Dates: start: 20140910, end: 20141128
  4. GEMZAR [Suspect]
     Active Substance: GEMCITABINE HYDROCHLORIDE
     Indication: BREAST CANCER METASTATIC
     Dosage: UNK, UNKNOWN
     Route: 065
     Dates: start: 20140318, end: 20140821
  5. DOCETAXEL. [Suspect]
     Active Substance: DOCETAXEL
     Dosage: UNK, UNKNOWN
     Route: 065
     Dates: start: 20140318, end: 20140821
  6. AVASTIN [Suspect]
     Active Substance: BEVACIZUMAB
     Dosage: UNK, UNKNOWN
     Route: 065
     Dates: start: 20140318, end: 20140821

REACTIONS (2)
  - Off label use [Unknown]
  - Malignant neoplasm progression [Unknown]

NARRATIVE: CASE EVENT DATE: 201503
